FAERS Safety Report 8372408-3 (Version None)
Quarter: 2012Q2

REPORT INFORMATION
  Report Type: 
  Country: None (occurrence: None)
  Receive Date: 20120521
  Receipt Date: 20120509
  Transmission Date: 20120825
  Serious: Yes (Hospitalization, Other)
  Sender: FDA-Public Use
  Company Number: IE-BRISTOL-MYERS SQUIBB COMPANY-14836787

PATIENT
  Age: 35 Year
  Sex: Female

DRUGS (7)
  1. IPILIMUMAB [Suspect]
     Indication: MALIGNANT MELANOMA
     Dosage: TOTAL CYCLE:4 EACH CYCLE EACH MONTH,01DEC09-01DEC09,900MG,NO.OF COURSES:4
     Route: 042
     Dates: start: 20080901, end: 20081201
  2. DOMPERIDONE [Concomitant]
     Dates: start: 20081201
  3. PERMIXON [Concomitant]
     Dates: start: 20081201
  4. TRAMADOL HYDROCHLORIDE [Concomitant]
     Dates: start: 20090102, end: 20090109
  5. PREGABALIN [Concomitant]
     Dates: start: 20090102, end: 20090109
  6. ACETAMINOPHEN [Concomitant]
     Dates: start: 20090102, end: 20090109
  7. CYCLIZINE [Concomitant]
     Dates: start: 20081201

REACTIONS (9)
  - NAUSEA [None]
  - RASH [None]
  - UVEITIS [None]
  - ALOPECIA [None]
  - PRURITUS [None]
  - AUTOIMMUNE HEPATITIS [None]
  - HYPOTENSION [None]
  - VOMITING [None]
  - DEHYDRATION [None]
